FAERS Safety Report 16037285 (Version 1)
Quarter: 2019Q1

REPORT INFORMATION
  Report Type: Spontaneous
  Country: JP (occurrence: JP)
  Receive Date: 20190305
  Receipt Date: 20190305
  Transmission Date: 20190418
  Serious: Yes (Other)
  Sender: FDA-Public Use
  Company Number: PHHY2019JP049533

PATIENT
  Age: 29 Year
  Sex: Female
  Weight: 74 kg

DRUGS (7)
  1. FUROSEMIDE. [Suspect]
     Active Substance: FUROSEMIDE
     Indication: MIRROR SYNDROME
     Route: 048
  2. RITODRINE [Suspect]
     Active Substance: RITODRINE
     Indication: UTERINE HYPERTONUS
     Route: 065
  3. ROCURONIUM [Suspect]
     Active Substance: ROCURONIUM BROMIDE
     Indication: HYPOTONIA
     Dosage: 80 MG, UNK
     Route: 065
  4. DEXMEDETOMIDINE. [Suspect]
     Active Substance: DEXMEDETOMIDINE
     Indication: SEDATION
     Route: 065
  5. PROPOFOL. [Suspect]
     Active Substance: PROPOFOL
     Indication: GENERAL ANAESTHESIA
     Dosage: 150 MG, UNK
     Route: 065
  6. ALBUMIN [Suspect]
     Active Substance: ALBUMIN HUMAN
     Indication: MIRROR SYNDROME
     Route: 042
  7. MAGNESIUM [Suspect]
     Active Substance: MAGNESIUM
     Indication: UTERINE HYPERTONUS
     Route: 065

REACTIONS (2)
  - Maternal exposure during pregnancy [Unknown]
  - Premature delivery [Unknown]
